FAERS Safety Report 4714389-7 (Version None)
Quarter: 2005Q3

REPORT INFORMATION
  Report Type: 
  Country: None (occurrence: None)
  Receive Date: 20050714
  Receipt Date: 20040701
  Transmission Date: 20060218
  Serious: Yes (Other)
  Sender: FDA-Public Use
  Company Number: NO-GLAXOSMITHKLINE-B0338473A

PATIENT
  Sex: Male

DRUGS (2)
  1. ZYBAN [Suspect]
  2. ETHANOL [Suspect]

REACTIONS (1)
  - LOSS OF CONSCIOUSNESS [None]
